FAERS Safety Report 21457746 (Version 1)
Quarter: 2022Q4

REPORT INFORMATION
  Report Type: Spontaneous
  Country: DE (occurrence: DE)
  Receive Date: 20221014
  Receipt Date: 20221014
  Transmission Date: 20230112
  Serious: Yes (Other)
  Sender: FDA-Public Use
  Company Number: DE-TEVA-2022-DE-2081601

PATIENT
  Age: 52 Year
  Sex: Female

DRUGS (1)
  1. GABAPENTIN [Suspect]
     Active Substance: GABAPENTIN
     Indication: Product used for unknown indication
     Route: 048
     Dates: start: 2012, end: 2022

REACTIONS (2)
  - Hypersensitivity [Unknown]
  - Dysphagia [Unknown]

NARRATIVE: CASE EVENT DATE: 20220101
